FAERS Safety Report 16326721 (Version 5)
Quarter: 2019Q2

REPORT INFORMATION
  Report Type: Spontaneous
  Country: DE (occurrence: DE)
  Receive Date: 20190517
  Receipt Date: 20190620
  Transmission Date: 20190711
  Serious: Yes (Hospitalization, Other)
  Sender: FDA-Public Use
  Company Number: DE-ELI_LILLY_AND_COMPANY-DE201905007771

PATIENT
  Age: 51 Year
  Sex: Female
  Weight: 65 kg

DRUGS (10)
  1. METAMIZOL METAMIZOLE MAGNESIUM [Concomitant]
     Indication: CANCER PAIN
     Dosage: 500 MG, EVERY 6 HRS
     Route: 048
     Dates: start: 20190301
  2. GLANDOMED [Concomitant]
     Indication: MUCOSAL INFLAMMATION
     Dosage: 10 ML, EVERY 6 HRS
     Route: 061
     Dates: start: 20181022
  3. TRAMAL [Concomitant]
     Active Substance: TRAMADOL
     Indication: CANCER PAIN
     Dosage: 50 MG, UNK
     Route: 048
     Dates: start: 20190304
  4. PANTOPRAZOLE [Concomitant]
     Active Substance: PANTOPRAZOLE
     Indication: GASTRITIS PROPHYLAXIS
     Dosage: 40 MG, DAILY
     Route: 048
     Dates: start: 20190301
  5. CISPLATIN. [Suspect]
     Active Substance: CISPLATIN
     Indication: LIP AND/OR ORAL CAVITY CANCER
     Dosage: UNK UNK, UNKNOWN
     Route: 065
     Dates: start: 20190222
  6. AMPHO MORONAL [Concomitant]
     Active Substance: AMPHOTERICIN B
     Indication: MUCOSAL INFLAMMATION
     Dosage: UNK, EVERY 6 HRS
     Route: 061
     Dates: start: 20190404
  7. ERBITUX [Suspect]
     Active Substance: CETUXIMAB
     Indication: LIP AND/OR ORAL CAVITY CANCER
     Dosage: 250 MG/M2, MONTHLY (1/M)
     Route: 065
     Dates: start: 20190222
  8. FLUOROURACIL 5 FU [Suspect]
     Active Substance: FLUOROURACIL
     Indication: LIP AND/OR ORAL CAVITY CANCER
     Dosage: UNK UNK, MONTHLY (1/M)
     Route: 065
     Dates: start: 20190222
  9. MINOCYCLINE [Concomitant]
     Active Substance: MINOCYCLINE\MINOCYCLINE HYDROCHLORIDE
     Indication: ERYTHEMA
     Dosage: 50 MG, BID
     Route: 048
     Dates: start: 20190404
  10. CIPROFLOXACIN. [Concomitant]
     Active Substance: CIPROFLOXACIN
     Indication: NEUTROPENIA
     Dosage: 500 MG, UNK
     Route: 048
     Dates: start: 20190404

REACTIONS (4)
  - Weight decreased [Unknown]
  - Acute kidney injury [Recovering/Resolving]
  - General physical health deterioration [Unknown]
  - Stomatitis [Recovered/Resolved with Sequelae]

NARRATIVE: CASE EVENT DATE: 2019
